FAERS Safety Report 6726724-9 (Version None)
Quarter: 2010Q2

REPORT INFORMATION
  Report Type: 
  Country: None (occurrence: None)
  Receive Date: 20100514
  Receipt Date: 20100512
  Transmission Date: 20101027
  Serious: Yes (Death)
  Sender: FDA-Public Use
  Company Number: CN-ROCHE-702544

PATIENT
  Sex: Male

DRUGS (2)
  1. MYCOPHENOLATE MOFETIL [Suspect]
     Indication: SYSTEMIC LUPUS ERYTHEMATOSUS
     Dosage: 500MG IN THE MORNING, 500MG IN THE EVENING.
     Route: 048
  2. PREDNISONE [Concomitant]
     Indication: SYSTEMIC LUPUS ERYTHEMATOSUS
     Dosage: TRADE NAME WAS REPORTED AS HORMONE.

REACTIONS (1)
  - SYSTEMIC LUPUS ERYTHEMATOSUS [None]
